FAERS Safety Report 15396137 (Version 1)
Quarter: 2018Q3

REPORT INFORMATION
  Report Type: Spontaneous
  Country: IT (occurrence: IT)
  Receive Date: 20180918
  Receipt Date: 20180918
  Transmission Date: 20181010
  Serious: Yes (Other)
  Sender: FDA-Public Use
  Company Number: PHHY2018IT096104

PATIENT
  Age: 45 Year
  Sex: Female

DRUGS (4)
  1. DAPAROX [Concomitant]
     Active Substance: PAROXETINE HYDROCHLORIDE
     Indication: PRODUCT USED FOR UNKNOWN INDICATION
     Dosage: 1 DF, UNK
     Route: 065
  2. KEPPRA [Suspect]
     Active Substance: LEVETIRACETAM
     Indication: INTENTIONAL SELF-INJURY
     Dosage: 5 DF, UNK (TOTAL)
     Route: 048
     Dates: start: 20180627
  3. VALIUM [Suspect]
     Active Substance: DIAZEPAM
     Indication: INTENTIONAL SELF-INJURY
     Dosage: 7 GTT, UNK (TOTAL)
     Route: 048
     Dates: start: 20180627
  4. TEGRETOL [Suspect]
     Active Substance: CARBAMAZEPINE
     Indication: INTENTIONAL SELF-INJURY
     Dosage: 5 DF, UNK (TOTAL)
     Route: 048
     Dates: start: 20180627

REACTIONS (3)
  - Sopor [Recovering/Resolving]
  - Poisoning [Recovering/Resolving]
  - Drug abuse [Recovering/Resolving]

NARRATIVE: CASE EVENT DATE: 20180627
